FAERS Safety Report 8143389-2 (Version None)
Quarter: 2012Q1

REPORT INFORMATION
  Report Type: 
  Country: None (occurrence: None)
  Receive Date: 20120217
  Receipt Date: 20120215
  Transmission Date: 20120608
  Serious: No
  Sender: FDA-Public Use
  Company Number: US-BAYER-2012-015738

PATIENT
  Age: 73 Year
  Sex: Female

DRUGS (2)
  1. VALIUM [Concomitant]
     Indication: DEPRESSION
  2. BETASERON [Suspect]
     Indication: MULTIPLE SCLEROSIS
     Dosage: 0.25 MG, UNK
     Route: 058
     Dates: start: 20080226

REACTIONS (1)
  - DEPRESSION [None]
